FAERS Safety Report 17505205 (Version 1)
Quarter: 2020Q1

REPORT INFORMATION
  Report Type: Report from Study
  Country: US (occurrence: US)
  Receive Date: 20200305
  Receipt Date: 20200305
  Transmission Date: 20200409
  Serious: Yes (Hospitalization)
  Sender: FDA-Public Use
  Company Number: US-ACTELION-A-NJ2017-164876

PATIENT
  Age: 72 Year
  Sex: Female
  Weight: 73.02 kg

DRUGS (6)
  1. TRACLEER [Suspect]
     Active Substance: BOSENTAN
     Dosage: 125 MG, BID
     Route: 048
  2. COUMADIN [Concomitant]
     Active Substance: WARFARIN SODIUM
  3. TRACLEER [Suspect]
     Active Substance: BOSENTAN
     Indication: PULMONARY ARTERIAL HYPERTENSION
     Dosage: 125 MG, BID
     Route: 048
  4. JANUVIA [Concomitant]
     Active Substance: SITAGLIPTIN PHOSPHATE
     Dosage: 50 MG, QD
  5. REMODULIN [Suspect]
     Active Substance: TREPROSTINIL
     Indication: PULMONARY ARTERIAL HYPERTENSION
     Dosage: 15 NG/KG, PER MIN
     Route: 042
  6. ELIQUIS [Concomitant]
     Active Substance: APIXABAN

REACTIONS (18)
  - Upper respiratory tract infection [Recovered/Resolved]
  - Nasopharyngitis [Unknown]
  - Injection site haemorrhage [Unknown]
  - Haemoptysis [Unknown]
  - Viral infection [Recovered/Resolved]
  - Fluid overload [Recovered/Resolved]
  - Cardiac disorder [Unknown]
  - Injection site pain [Unknown]
  - Catheter site discolouration [Unknown]
  - Dyspnoea [Recovered/Resolved]
  - Epistaxis [Unknown]
  - Arthritis [Unknown]
  - Pain in extremity [Unknown]
  - Cough [Unknown]
  - Oedema [Recovered/Resolved]
  - Swelling [Unknown]
  - Erythema [Unknown]
  - Injection site swelling [Unknown]

NARRATIVE: CASE EVENT DATE: 20191118
